FAERS Safety Report 9708898 (Version 2)
Quarter: 2014Q1

REPORT INFORMATION
  Report Type: Spontaneous
  Country: US (occurrence: US)
  Receive Date: 20131125
  Receipt Date: 20140224
  Transmission Date: 20141002
  Serious: Yes (Other)
  Sender: FDA-Public Use
  Company Number: US-GILEAD-2013-0086281

PATIENT
  Age: 39 Year
  Sex: Male
  Weight: 77.98 kg

DRUGS (10)
  1. COMPLERA [Suspect]
     Indication: PRODUCT USED FOR UNKNOWN INDICATION
     Dosage: UNK
     Dates: start: 201306
  2. ADVAIR [Concomitant]
     Indication: ASTHMA
  3. ALPRAZOLAM [Concomitant]
     Indication: ANXIETY
  4. ALPRAZOLAM [Concomitant]
     Indication: SOMNOLENCE
  5. DRONABINOL [Concomitant]
     Indication: DECREASED APPETITE
  6. ENDOCET [Concomitant]
     Indication: PAIN
  7. HYDROMORPHONE [Concomitant]
     Indication: PAIN
  8. ROBAXIN [Concomitant]
     Indication: MUSCLE SPASMS
  9. PRO-AIR [Concomitant]
     Indication: ASTHMA
  10. TRIAZOLAM [Concomitant]
     Indication: ANXIETY

REACTIONS (11)
  - Suicidal ideation [Recovered/Resolved]
  - Heart rate increased [Unknown]
  - Palpitations [Recovered/Resolved]
  - Aggression [Unknown]
  - Social avoidant behaviour [Unknown]
  - Bone pain [Recovered/Resolved]
  - Arthralgia [Recovered/Resolved]
  - Dyspnoea [Recovered/Resolved]
  - Abnormal dreams [Recovered/Resolved]
  - Vomiting [Unknown]
  - Depressed mood [Unknown]
